FAERS Safety Report 23442896 (Version 2)
Quarter: 2024Q1

REPORT INFORMATION
  Report Type: Spontaneous
  Country: CN (occurrence: CN)
  Receive Date: 20240125
  Receipt Date: 20240201
  Transmission Date: 20240409
  Serious: Yes (Other)
  Sender: FDA-Public Use
  Company Number: CN-SA-2024SA023461

PATIENT
  Age: 70 Year
  Sex: Female

DRUGS (3)
  1. PLAVIX [Suspect]
     Active Substance: CLOPIDOGREL BISULFATE
     Dosage: 1 DF, QD
     Route: 065
     Dates: start: 202311
  2. METOPROLOL TARTRATE [Concomitant]
     Active Substance: METOPROLOL TARTRATE
     Dosage: 0.5 DF, QD
     Route: 065
  3. EZETIMIBE [Concomitant]
     Active Substance: EZETIMIBE
     Indication: Hyperlipidaemia
     Dosage: 1 DF, QD
     Route: 065

REACTIONS (11)
  - Cerebral vasoconstriction [Unknown]
  - Gait disturbance [Unknown]
  - Insomnia [Unknown]
  - Asthenia [Unknown]
  - Somnolence [Unknown]
  - Decreased appetite [Unknown]
  - Bone pain [Unknown]
  - Back pain [Unknown]
  - Spinal pain [Unknown]
  - Vomiting [Unknown]
  - Anaemia [Unknown]
